FAERS Safety Report 9146796 (Version 1)
Quarter: 2013Q1

REPORT INFORMATION
  Report Type: Spontaneous
  Country: US (occurrence: US)
  Receive Date: 20130307
  Receipt Date: 20130307
  Transmission Date: 20140127
  Serious: Yes (Hospitalization, Other)
  Sender: FDA-Public Use
  Company Number: US-BAXTER-2013BAX007668

PATIENT
  Age: 64 None
  Sex: Male

DRUGS (1)
  1. DIANEAL LOW CALCIUM [Suspect]
     Indication: PERITONEAL DIALYSIS
     Dosage: 15 LITERS
     Route: 033

REACTIONS (3)
  - Rib fracture [Recovering/Resolving]
  - Fall [Unknown]
  - Intestinal obstruction [Recovering/Resolving]
